FAERS Safety Report 10014073 (Version 2)
Quarter: 2014Q2

REPORT INFORMATION
  Report Type: Report from Study
  Country: CZ (occurrence: CZ)
  Receive Date: 20140317
  Receipt Date: 20140501
  Transmission Date: 20141212
  Serious: Yes (Hospitalization, Other)
  Sender: FDA-Public Use
  Company Number: CZ-BIOGENIDEC-2014BI022495

PATIENT
  Age: 36 Year
  Sex: Female

DRUGS (2)
  1. TYSABRI [Suspect]
     Indication: RELAPSING-REMITTING MULTIPLE SCLEROSIS
     Route: 042
     Dates: start: 20090617, end: 20130120
  2. ESCITALOPRAM [Concomitant]
     Dates: start: 20120531

REACTIONS (1)
  - Uterine leiomyoma [Recovered/Resolved]
